FAERS Safety Report 10753951 (Version 1)
Quarter: 2015Q1

REPORT INFORMATION
  Report Type: Spontaneous
  Country: US (occurrence: None)
  Receive Date: 20150129
  Receipt Date: 20150129
  Transmission Date: 20150721
  Serious: Yes (Hospitalization, Other)
  Sender: FDA-Public Use
  Company Number: ADR-2015-00197

PATIENT
  Age: 68 Year
  Sex: Female

DRUGS (3)
  1. PREDNISONE. [Suspect]
     Active Substance: PREDNISONE
     Indication: PRODUCT USED FOR UNKNOWN INDICATION
  2. BACLOFEN. [Suspect]
     Active Substance: BACLOFEN
     Indication: PAIN
  3. OPIOID [Suspect]
     Active Substance: UNSPECIFIED INGREDIENT

REACTIONS (9)
  - Neck pain [None]
  - Headache [None]
  - Emotional disorder [None]
  - Drug clearance decreased [None]
  - Musculoskeletal disorder [None]
  - Red blood cell sedimentation rate increased [None]
  - Delirium [None]
  - Economic problem [None]
  - Condition aggravated [None]

NARRATIVE: CASE EVENT DATE: 20141006
